FAERS Safety Report 9288634 (Version 1)
Quarter: 2013Q2

REPORT INFORMATION
  Report Type: Spontaneous
  Country: US (occurrence: US)
  Receive Date: 20130514
  Receipt Date: 20130514
  Transmission Date: 20140414
  Serious: Yes (Hospitalization)
  Sender: FDA-Public Use
  Company Number: PHEH2013US010279

PATIENT
  Sex: Male

DRUGS (3)
  1. DIOVAN HCT [Suspect]
     Dosage: 1 DF, (160MG VAL, 12.5MG HCT), UNK
  2. DIOVAN [Concomitant]
     Dosage: 160 MG, UNK
  3. CRESTOR [Concomitant]

REACTIONS (1)
  - Heart rate irregular [Unknown]
